FAERS Safety Report 8373310-3 (Version None)
Quarter: 2012Q2

REPORT INFORMATION
  Report Type: 
  Country: None (occurrence: None)
  Receive Date: 20120521
  Receipt Date: 20120515
  Transmission Date: 20120825
  Serious: Yes (Hospitalization)
  Sender: FDA-Public Use
  Company Number: JP-SANOFI-AVENTIS-2011SA064973

PATIENT
  Age: 77 Year
  Sex: Male
  Weight: 55 kg

DRUGS (9)
  1. EMEND [Concomitant]
     Indication: PROPHYLAXIS
     Route: 048
  2. CALCIUM LEVOFOLINATE [Concomitant]
     Indication: RECTAL CANCER
     Route: 041
     Dates: start: 20110626, end: 20110824
  3. FLUOROURACIL [Concomitant]
     Indication: RECTAL CANCER
     Dosage: IN BOLUS
     Route: 040
     Dates: start: 20110726, end: 20110824
  4. FLUOROURACIL [Concomitant]
     Dosage: CONTINOUS INFUSION
     Route: 041
     Dates: start: 20110726, end: 20110824
  5. OXALIPLATIN [Suspect]
     Indication: RECTAL CANCER
     Dosage: FORM- INFUSION SOLUTION INJECTION
     Route: 041
     Dates: start: 20110726, end: 20110726
  6. OXALIPLATIN [Suspect]
     Dosage: FORM- INFUSION SOLUTION INJECTION
     Route: 041
     Dates: start: 20110824, end: 20110824
  7. DEXAMETHASONE SODIUM POSPHATE [Concomitant]
     Indication: PREMEDICATION
     Route: 041
     Dates: start: 20110726, end: 20110824
  8. ALOXI [Concomitant]
     Indication: PREMEDICATION
     Route: 041
     Dates: start: 20110726, end: 20110824
  9. OXALIPLATIN [Suspect]
     Dosage: FORM- INFUSION SOLUTION INJECTION
     Route: 041
     Dates: start: 20110810, end: 20110810

REACTIONS (1)
  - TRANSIENT ISCHAEMIC ATTACK [None]
